FAERS Safety Report 5209306-X (Version None)
Quarter: 2006Q4

REPORT INFORMATION
  Report Type: 
  Country: None (occurrence: None)
  Receive Date: 20061101
  Receipt Date: 20060814
  Transmission Date: 20070319
  Serious: No
  Sender: FDA-Public Use
  Company Number: SPV1-2006-00429

PATIENT
  Age: 55 Year
  Sex: Female
  Weight: 58 kg

DRUGS (10)
  1. FOSRENOL [Suspect]
     Indication: HYPERPHOSPHATAEMIA
     Dosage: 500 MG, 2X/DAY: BID
     Dates: start: 20060502, end: 20060602
  2. ERYTHROPOIETIN (ERYTHROPOIETIN) [Concomitant]
  3. RENALVITE (THIAMINE HYDROCHLORIDE, RIBOFLAVIN, PYRIDOXINE HYDROCHLORID [Concomitant]
  4. RENAGEL (SEVELAMER) [Concomitant]
  5. FLUDROCORTISONE ACETATE [Concomitant]
  6. SILVERIN (SULFADIAZINE SILVER) [Concomitant]
  7. ZOLOFT [Concomitant]
  8. APO-K (POTASSIUM CHLORIDE) [Concomitant]
  9. CRESTOR [Concomitant]
  10. TUMS [Concomitant]

REACTIONS (1)
  - DIARRHOEA [None]
